FAERS Safety Report 10216551 (Version 3)
Quarter: 2014Q3

REPORT INFORMATION
  Report Type: Spontaneous
  Country: US (occurrence: US)
  Receive Date: 20140604
  Receipt Date: 20140729
  Transmission Date: 20150326
  Serious: Yes (Other)
  Sender: FDA-Public Use
  Company Number: US-SA-2014SA070974

PATIENT
  Sex: Male
  Weight: 83.91 kg

DRUGS (4)
  1. PLAVIX [Suspect]
     Active Substance: CLOPIDOGREL BISULFATE
     Indication: STENT PLACEMENT
     Route: 065
  2. RANITIDINE [Concomitant]
     Active Substance: RANITIDINE\RANITIDINE HYDROCHLORIDE
  3. PLAVIX [Suspect]
     Active Substance: CLOPIDOGREL BISULFATE
     Indication: STENT PLACEMENT
     Route: 065
     Dates: start: 2012
  4. ASPIRIN. [Concomitant]
     Active Substance: ASPIRIN

REACTIONS (17)
  - Oesophagitis [Unknown]
  - Gastrooesophageal reflux disease [Unknown]
  - Blood pressure fluctuation [Unknown]
  - Colour blindness [Unknown]
  - Gastrointestinal erosion [Unknown]
  - Retinal haemorrhage [Not Recovered/Not Resolved]
  - Hiatus hernia [Unknown]
  - Gastritis [Unknown]
  - Helicobacter infection [Unknown]
  - Duodenitis [Unknown]
  - Loss of consciousness [Not Recovered/Not Resolved]
  - Amnesia [Unknown]
  - Headache [Recovered/Resolved]
  - Chest pain [Not Recovered/Not Resolved]
  - Dyspnoea [Recovering/Resolving]
  - Hypoaesthesia [Not Recovered/Not Resolved]
  - Vision blurred [Not Recovered/Not Resolved]
